FAERS Safety Report 23770052 (Version 1)
Quarter: 2024Q2

REPORT INFORMATION
  Report Type: Spontaneous
  Country: US (occurrence: None)
  Receive Date: 20240421
  Receipt Date: 20240421
  Transmission Date: 20240716
  Serious: Yes (Hospitalization)
  Sender: FDA-Public Use
  Company Number: None

PATIENT
  Age: 70 Year
  Sex: Male

DRUGS (1)
  1. WARFARIN SODIUM [Suspect]
     Active Substance: WARFARIN SODIUM
     Indication: Antiphospholipid syndrome
     Dosage: FREQUENCY : DAILY;?
     Route: 048
     Dates: start: 20180926

REACTIONS (2)
  - Haemoptysis [None]
  - International normalised ratio increased [None]

NARRATIVE: CASE EVENT DATE: 20230724
